FAERS Safety Report 21755135 (Version 1)
Quarter: 2022Q4

REPORT INFORMATION
  Report Type: Report from Study
  Country: US (occurrence: US)
  Receive Date: 20221220
  Receipt Date: 20221220
  Transmission Date: 20230112
  Serious: No
  Sender: FDA-Public Use
  Company Number: US-ABBVIE-4243366

PATIENT
  Age: 57 Year
  Sex: Male

DRUGS (1)
  1. VENCLEXTA [Suspect]
     Active Substance: VENETOCLAX
     Indication: Chronic myeloid leukaemia
     Dosage: TAKE 1 TABLET BY MOUTH DAILY ON DAYS 2 THROUGH 8 AFTER STARTING CHEMO THERAPY, FORM STRENGTH 100 MG
     Route: 048

REACTIONS (4)
  - Chest pain [Unknown]
  - Restlessness [Unknown]
  - Vision blurred [Unknown]
  - Blood pressure increased [Unknown]

NARRATIVE: CASE EVENT DATE: 20221101
